FAERS Safety Report 6637193-1 (Version None)
Quarter: 2010Q1

REPORT INFORMATION
  Report Type: 
  Country: None (occurrence: None)
  Receive Date: 20100310
  Receipt Date: 20070611
  Transmission Date: 20100710
  Serious: Yes (Death, Hospitalization)
  Sender: FDA-Public Use
  Company Number: 2009-2822

PATIENT
  Age: 58 Year
  Sex: Male

DRUGS (7)
  1. APO-GO (APO-GO) (APOMORPHINE HYDROCHLORIDE) (APOMORPHINE HYDROCHLORIDE [Suspect]
     Indication: PARKINSON'S DISEASE
     Dosage: 2X10HR INFUSIONS (8 MG, 20 IN 24 HR), SUBCUTANEOUS; 160 MG (8 MG, 20 IN 24 HR), SUBCUTANEOUS
     Route: 058
     Dates: end: 20070207
  2. APO-GO (APO-GO) (APOMORPHINE HYDROCHLORIDE) (APOMORPHINE HYDROCHLORIDE [Suspect]
     Indication: PARKINSON'S DISEASE
     Dosage: 2X10HR INFUSIONS (8 MG, 20 IN 24 HR), SUBCUTANEOUS; 160 MG (8 MG, 20 IN 24 HR), SUBCUTANEOUS
     Route: 058
     Dates: start: 20070201, end: 20070301
  3. QUETIAPINE [Suspect]
     Indication: DEMENTIA WITH LEWY BODIES
     Dosage: 200 MG (100 MG, 2 IN 1 D), ORAL; 200MG (100 MG, 2 IN1 D), ORAL
     Route: 048
     Dates: end: 20070207
  4. QUETIAPINE [Suspect]
     Indication: DEMENTIA WITH LEWY BODIES
     Dosage: 200 MG (100 MG, 2 IN 1 D), ORAL; 200MG (100 MG, 2 IN1 D), ORAL
     Route: 048
     Dates: start: 20070221
  5. SINEMET [Suspect]
     Indication: PARKINSON'S DISEASE
     Dosage: 1375 MG (125 MG, 11 IN 1 D), ORAL, 1375 MG (125 MG, 11 IN 1 D),ORAL
     Route: 048
     Dates: end: 20070207
  6. SINEMET [Suspect]
     Indication: PARKINSON'S DISEASE
     Dosage: 1375 MG (125 MG, 11 IN 1 D), ORAL, 1375 MG (125 MG, 11 IN 1 D),ORAL
     Route: 048
     Dates: start: 20070221
  7. RIVASTIGMINE (RIVASTIGMINE) (RIVASTIGMINE) [Concomitant]

REACTIONS (5)
  - DEMENTIA WITH LEWY BODIES [None]
  - DISEASE PROGRESSION [None]
  - NO THERAPEUTIC RESPONSE [None]
  - PARKINSON'S DISEASE [None]
  - PRIAPISM [None]
